APPROVED DRUG PRODUCT: URSODIOL
Active Ingredient: URSODIOL
Strength: 500MG
Dosage Form/Route: TABLET;ORAL
Application: A090801 | Product #002 | TE Code: AB
Applicant: GLENMARK PHARMACEUTICALS LTD
Approved: Jul 12, 2011 | RLD: No | RS: No | Type: RX